FAERS Safety Report 5899563-9 (Version None)
Quarter: 2008Q3

REPORT INFORMATION
  Report Type: 
  Country: None (occurrence: None)
  Receive Date: 20080926
  Receipt Date: 20080917
  Transmission Date: 20090109
  Serious: Yes (Hospitalization, Other)
  Sender: FDA-Public Use
  Company Number: PHHY2008FR21817

PATIENT
  Sex: Female

DRUGS (1)
  1. TAREG [Suspect]
     Dosage: 160 MG, QD

REACTIONS (5)
  - ASTHENIA [None]
  - BEDRIDDEN [None]
  - GENITAL HAEMORRHAGE [None]
  - HAEMATOMA [None]
  - THROMBOCYTOPENIA [None]
